FAERS Safety Report 19587920 (Version 1)
Quarter: 2021Q3

REPORT INFORMATION
  Report Type: Spontaneous
  Country: US (occurrence: US)
  Receive Date: 20210721
  Receipt Date: 20210721
  Transmission Date: 20211014
  Serious: No
  Sender: FDA-Public Use
  Company Number: US-KARYOPHARM-2021KPT000635

PATIENT

DRUGS (12)
  1. ONDANSETRON [Concomitant]
     Active Substance: ONDANSETRON
  2. PANTOPRAZOLE [Concomitant]
     Active Substance: PANTOPRAZOLE
  3. XPOVIO [Suspect]
     Active Substance: SELINEXOR
     Indication: PLASMA CELL MYELOMA
     Dosage: 80 MG, 2X/WEEK
     Route: 048
     Dates: start: 20210428
  4. ALLOPURINOL. [Concomitant]
     Active Substance: ALLOPURINOL
  5. ACYCLOVIR [ACICLOVIR] [Concomitant]
     Active Substance: ACYCLOVIR
  6. ASPIR LOW [Concomitant]
     Active Substance: ASPIRIN
  7. PROCHLORPERAZINE. [Concomitant]
     Active Substance: PROCHLORPERAZINE
  8. IMODIUM A?D [Concomitant]
     Active Substance: LOPERAMIDE HYDROCHLORIDE
  9. MIRALAX [Concomitant]
     Active Substance: POLYETHYLENE GLYCOL 3350
  10. MIDODRINE [Concomitant]
     Active Substance: MIDODRINE
  11. SENNA ACUTIFOLIA [Concomitant]
  12. DEXAMETHASONE. [Concomitant]
     Active Substance: DEXAMETHASONE

REACTIONS (1)
  - No adverse event [Unknown]
